FAERS Safety Report 13241246 (Version 2)
Quarter: 2017Q1

REPORT INFORMATION
  Report Type: Spontaneous
  Country: US (occurrence: US)
  Receive Date: 20170216
  Receipt Date: 20170316
  Transmission Date: 20170428
  Serious: Yes (Hospitalization)
  Sender: FDA-Public Use
  Company Number: US-SAOL THERAPEUTICS-2017SAO00146

PATIENT
  Age: 17 Year
  Sex: Female

DRUGS (4)
  1. LIORESAL [Suspect]
     Active Substance: BACLOFEN
     Dosage: UNK
     Dates: start: 20170206
  2. LIORESAL [Suspect]
     Active Substance: BACLOFEN
     Dosage: 315 ?G, \DAY
     Dates: start: 20170109, end: 2017
  3. LIORESAL [Suspect]
     Active Substance: BACLOFEN
     Dosage: UNK
     Route: 037
     Dates: end: 20170109
  4. LIORESAL [Suspect]
     Active Substance: BACLOFEN
     Dosage: 279 ?G, \DAY
     Dates: start: 2017, end: 20170206

REACTIONS (9)
  - Drug dose omission [Unknown]
  - Drug withdrawal syndrome [Unknown]
  - Upper respiratory tract infection [Unknown]
  - Unevaluable event [Unknown]
  - Overdose [Unknown]
  - Device occlusion [Unknown]
  - Vomiting [Unknown]
  - Hypotonia [Unknown]
  - Somnolence [Unknown]

NARRATIVE: CASE EVENT DATE: 20161013
